FAERS Safety Report 8201022-5 (Version None)
Quarter: 2012Q1

REPORT INFORMATION
  Report Type: 
  Country: None (occurrence: None)
  Receive Date: 20120312
  Receipt Date: 20120307
  Transmission Date: 20120608
  Serious: Yes (Other)
  Sender: FDA-Public Use
  Company Number: DE-PFIZER INC-2012060670

PATIENT
  Age: 57 Year
  Sex: Female

DRUGS (4)
  1. QUETIAPINE FUMARATE [Suspect]
     Dosage: 25 MG, 1X/DAY
     Dates: start: 20110929
  2. VENLAFAXINE HCL [Suspect]
     Dosage: 75 MG, 1X/DAY
     Route: 048
     Dates: start: 20110916, end: 20111214
  3. VENLAFAXINE HCL [Suspect]
     Dosage: 37.5 MG, 1X/DAY
     Route: 048
     Dates: start: 20111215, end: 20120111
  4. VENLAFAXINE HCL [Suspect]
     Dosage: 37.5 MG, 1X/DAY
     Route: 048
     Dates: start: 20110913, end: 20110915

REACTIONS (1)
  - DEFAECATION URGENCY [None]
